FAERS Safety Report 14951634 (Version 1)
Quarter: 2018Q2

REPORT INFORMATION
  Report Type: Spontaneous
  Country: NL (occurrence: NL)
  Receive Date: 20180530
  Receipt Date: 20180530
  Transmission Date: 20180711
  Serious: Yes (Other)
  Sender: FDA-Public Use
  Company Number: NL-009507513-1805NLD009988

PATIENT
  Sex: Female

DRUGS (1)
  1. IMPLANON [Suspect]
     Active Substance: ETONOGESTREL
     Dosage: 1 DF, UNK

REACTIONS (5)
  - Surgery [Unknown]
  - Blood prolactin increased [Unknown]
  - Device deployment issue [Recovered/Resolved]
  - Menstrual disorder [Unknown]
  - Complication associated with device [Recovered/Resolved]
